FAERS Safety Report 9855637 (Version 1)
Quarter: 2013Q4

REPORT INFORMATION
  Report Type: Spontaneous
  Country: US (occurrence: None)
  Receive Date: 20131226
  Receipt Date: 20131226
  Transmission Date: 20140711
  Serious: Yes (Other)
  Sender: FDA-Public Use
  Company Number: PHEH2012US025003

PATIENT
  Age: 52 Year
  Sex: Female

DRUGS (7)
  1. VIVELLE DOT (ESTRADIOL) TRANS-THERAPEUTIC-SYSTEM [Suspect]
     Route: 062
     Dates: start: 20120901
  2. LEXAPRO (ESCITALOPRAM OXALATE) [Concomitant]
  3. SUPER B (AMINO ACIDS NOS, MINERALS NOS, VITAMINS NOS) [Concomitant]
  4. VITAMIN B-12 (CYANOCOBALAMN) [Concomitant]
  5. FLAXSEED OIL (LINUM USITATISSIMUM SEED OIL) [Concomitant]
  6. VITAMIN D (ERGOCALCIFEROL) [Concomitant]
  7. LORAZEPAM (LORAZEPAM) [Concomitant]

REACTIONS (4)
  - Depression [None]
  - Anxiety [None]
  - Weight increased [None]
  - Nausea [None]
